FAERS Safety Report 5081844-2 (Version None)
Quarter: 2006Q3

REPORT INFORMATION
  Report Type: 
  Country: None (occurrence: None)
  Receive Date: 20060811
  Receipt Date: 20060801
  Transmission Date: 20061208
  Serious: Yes (Hospitalization)
  Sender: FDA-Public Use
  Company Number: TCI2006A02534

PATIENT
  Age: 67 Year
  Sex: Male

DRUGS (5)
  1. ACTOS [Suspect]
     Indication: DIABETES MELLITUS
     Dosage: 1 TAB (1 TAB., 1 IN 1 D)
     Route: 048
     Dates: start: 20031201
  2. TEGRETOL [Suspect]
     Route: 048
     Dates: start: 20060315
  3. ASPIRIN [Concomitant]
  4. GLYBURIDE [Concomitant]
  5. PRAVASTATIN SODIUM [Concomitant]

REACTIONS (9)
  - BLOOD LACTATE DEHYDROGENASE INCREASED [None]
  - CHEST DISCOMFORT [None]
  - DRUG ERUPTION [None]
  - EYELID OEDEMA [None]
  - HAEMORRHAGE SUBCUTANEOUS [None]
  - HICCUPS [None]
  - PYREXIA [None]
  - RASH ERYTHEMATOUS [None]
  - RASH PUSTULAR [None]
